FAERS Safety Report 17950611 (Version 1)
Quarter: 2020Q2

REPORT INFORMATION
  Report Type: Spontaneous
  Country: KR (occurrence: KR)
  Receive Date: 20200626
  Receipt Date: 20200626
  Transmission Date: 20200714
  Serious: Yes (Other)
  Sender: FDA-Public Use
  Company Number: KR-EMD SERONO-9170383

PATIENT
  Sex: Male

DRUGS (1)
  1. DIABEX 1000 MG [Suspect]
     Active Substance: METFORMIN HYDROCHLORIDE
     Indication: PRODUCT USED FOR UNKNOWN INDICATION
     Route: 048

REACTIONS (3)
  - Product colour issue [Unknown]
  - Pruritus [Unknown]
  - Erythema multiforme [Unknown]
